FAERS Safety Report 26146701 (Version 1)
Quarter: 2025Q4

REPORT INFORMATION
  Report Type: Spontaneous
  Country: US (occurrence: US)
  Receive Date: 20251211
  Receipt Date: 20251211
  Transmission Date: 20260118
  Serious: No
  Sender: PFIZER
  Company Number: US-PFIZER INC-202400107882

PATIENT
  Age: 71 Year
  Sex: Female

DRUGS (5)
  1. CIBINQO [Suspect]
     Active Substance: ABROCITINIB
     Indication: Dermatitis atopic
     Dosage: 100 MG, DAILY (3+ YEARS)
     Route: 048
  2. CIBINQO [Suspect]
     Active Substance: ABROCITINIB
     Indication: Skin plaque
  3. CIBINQO [Suspect]
     Active Substance: ABROCITINIB
     Indication: Lichenification
  4. CIBINQO [Suspect]
     Active Substance: ABROCITINIB
     Indication: Skin discolouration
  5. CIBINQO [Suspect]
     Active Substance: ABROCITINIB
     Indication: Eczema

REACTIONS (1)
  - Drug ineffective [Unknown]
